FAERS Safety Report 5176389-5 (Version None)
Quarter: 2006Q4

REPORT INFORMATION
  Report Type: 
  Country: None (occurrence: None)
  Receive Date: 20061215
  Receipt Date: 20061109
  Transmission Date: 20070319
  Serious: Yes (Other)
  Sender: FDA-Public Use
  Company Number: 2006CG01860

PATIENT
  Age: 735 Month
  Sex: Female
  Weight: 64 kg

DRUGS (2)
  1. ARIMIDEX [Suspect]
     Indication: BREAST CANCER FEMALE
     Route: 048
     Dates: start: 20060504, end: 20060914
  2. ANTIHISTAMINES [Concomitant]
     Indication: MULTIPLE ALLERGIES
     Dates: end: 20060601

REACTIONS (4)
  - FACE OEDEMA [None]
  - OEDEMA [None]
  - OEDEMA PERIPHERAL [None]
  - OLIGURIA [None]
